FAERS Safety Report 7360445-7 (Version None)
Quarter: 2011Q1

REPORT INFORMATION
  Report Type: 
  Country: None (occurrence: None)
  Receive Date: 20110318
  Receipt Date: 20110307
  Transmission Date: 20110831
  Serious: Yes (Death, Hospitalization)
  Sender: FDA-Public Use
  Company Number: DE-JNJFOC-20110303306

PATIENT
  Age: 80 Year
  Sex: Female

DRUGS (14)
  1. CALCIUM AND VITAMIN D3 [Concomitant]
     Dosage: 400 I.E., BEFORE 2003
  2. REMICADE [Suspect]
     Route: 042
  3. FOSAVANCE [Concomitant]
  4. REMICADE [Suspect]
     Route: 042
  5. PREDNISOLONE [Concomitant]
     Dosage: BEFORE 2003
  6. PANTOZOL [Concomitant]
  7. ALLOPURINOL [Concomitant]
  8. REMICADE [Suspect]
     Indication: RHEUMATOID ARTHRITIS
     Route: 042
  9. METHOTREXATE [Concomitant]
     Indication: RHEUMATOID ARTHRITIS
     Route: 048
  10. NITRENDIPIN [Concomitant]
  11. TRAMAGIT [Concomitant]
  12. CAPTO COMP [Concomitant]
     Dosage: CAPTOPRIL 50 MG, HYDROCHLOROTHIAZID 25 MG
  13. ENBREL [Suspect]
     Indication: RHEUMATOID ARTHRITIS
  14. BISOPROLOL [Concomitant]

REACTIONS (6)
  - PULMONARY EMBOLISM [None]
  - PANCREATITIS CHRONIC [None]
  - PELVIC VENOUS THROMBOSIS [None]
  - SEPSIS [None]
  - PNEUMONIA [None]
  - THROMBOSIS [None]
